FAERS Safety Report 6141356-1 (Version None)
Quarter: 2009Q2

REPORT INFORMATION
  Report Type: 
  Country: None (occurrence: None)
  Receive Date: 20090402
  Receipt Date: 20090324
  Transmission Date: 20091009
  Serious: Yes (Disabling)
  Sender: FDA-Public Use
  Company Number: FR-ROCHE-613616

PATIENT
  Sex: Female
  Weight: 52 kg

DRUGS (1)
  1. BONIVA [Suspect]
     Indication: OSTEOPOROSIS
     Dosage: DOSAGE REGIMEN: 3MG
     Route: 042
     Dates: start: 20090121

REACTIONS (4)
  - EXTRAVASATION [None]
  - INJECTION SITE OEDEMA [None]
  - MUSCLE DISORDER [None]
  - PAIN IN EXTREMITY [None]
